FAERS Safety Report 5382268-0 (Version None)
Quarter: 2007Q3

REPORT INFORMATION
  Report Type: 
  Country: None (occurrence: None)
  Receive Date: 20070709
  Receipt Date: 20070625
  Transmission Date: 20080115
  Serious: Yes (Life-Threatening, Hospitalization)
  Sender: FDA-Public Use
  Company Number: US-SANOFI-SYNTHELABO-A03200402884

PATIENT
  Sex: Male

DRUGS (6)
  1. ELIGARD [Suspect]
     Indication: PROSTATE CANCER
     Route: 058
     Dates: start: 20040811
  2. BICALUTAMIDE [Concomitant]
     Route: 048
     Dates: start: 20040808, end: 20040810
  3. SIMVASTATIN [Concomitant]
     Dosage: UNK
     Route: 048
  4. ENALAPRIL [Concomitant]
     Dosage: UNK
     Route: 048
  5. LOSARTAN POTASSIUM [Concomitant]
     Dosage: UNK
     Route: 048
  6. METFORMIN HYDROCHLORIDE [Concomitant]
     Dosage: UNK
     Route: 048

REACTIONS (13)
  - ACUTE PULMONARY OEDEMA [None]
  - ANAPHYLACTIC SHOCK [None]
  - CYANOSIS [None]
  - DIZZINESS [None]
  - DYSPNOEA [None]
  - FLUSHING [None]
  - FUNGAEMIA [None]
  - RESPIRATORY DISTRESS [None]
  - STRESS [None]
  - SYNCOPE [None]
  - TACHYCARDIA [None]
  - TACHYPNOEA [None]
  - WHEEZING [None]
